FAERS Safety Report 13134429 (Version 1)
Quarter: 2017Q1

REPORT INFORMATION
  Report Type: Spontaneous
  Country: DE (occurrence: DE)
  Receive Date: 20170120
  Receipt Date: 20170120
  Transmission Date: 20170428
  Serious: Yes (Other)
  Sender: FDA-Public Use
  Company Number: DE-TEVA-716383GER

PATIENT
  Sex: Female
  Weight: 50 kg

DRUGS (1)
  1. SIMVASTATIN-RATIOPHARM 80MG [Suspect]
     Active Substance: SIMVASTATIN
     Indication: BLOOD CHOLESTEROL INCREASED
     Dosage: 80 MILLIGRAM DAILY;
     Route: 048
     Dates: start: 20141004, end: 201611

REACTIONS (7)
  - Myalgia [Unknown]
  - Cerebrovascular accident [Unknown]
  - Burning sensation [Unknown]
  - Pharyngeal oedema [Unknown]
  - Product substitution issue [Unknown]
  - Blindness unilateral [Unknown]
  - Drug intolerance [Unknown]
